FAERS Safety Report 9640105 (Version 2)
Quarter: 2013Q4

REPORT INFORMATION
  Report Type: Report from Study
  Country: US (occurrence: US)
  Receive Date: 20131023
  Receipt Date: 20131023
  Transmission Date: 20140711
  Serious: Yes (Hospitalization)
  Sender: FDA-Public Use
  Company Number: PHHO2009US14495

PATIENT
  Age: 64 Year
  Sex: Male

DRUGS (1)
  1. SOM230 [Suspect]
     Indication: PANCREATIC CARCINOMA
     Dosage: 900 MG, BID
     Route: 058
     Dates: start: 20091026, end: 20091028

REACTIONS (7)
  - Post procedural bile leak [Recovered/Resolved]
  - Febrile neutropenia [Recovered/Resolved]
  - Pancreatic carcinoma [Recovering/Resolving]
  - Abscess [Recovering/Resolving]
  - Vomiting [Recovering/Resolving]
  - Abdominal distension [Recovering/Resolving]
  - Ascites [Recovering/Resolving]
